FAERS Safety Report 17285602 (Version 2)
Quarter: 2020Q2

REPORT INFORMATION
  Report Type: Report from Study
  Country: US (occurrence: US)
  Receive Date: 20200117
  Receipt Date: 20200625
  Transmission Date: 20200713
  Serious: Yes (Hospitalization, Other)
  Sender: FDA-Public Use
  Company Number: US-ROCHE-2525366

PATIENT
  Sex: Male

DRUGS (2)
  1. ESBRIET [Suspect]
     Active Substance: PIRFENIDONE
     Route: 048
  2. ESBRIET [Suspect]
     Active Substance: PIRFENIDONE
     Indication: IDIOPATHIC PULMONARY FIBROSIS
     Route: 048
     Dates: start: 20200106

REACTIONS (12)
  - Cough [Unknown]
  - Dizziness [Unknown]
  - Nasopharyngitis [Unknown]
  - Pyrexia [Unknown]
  - Aortic aneurysm [Unknown]
  - Upper respiratory tract infection [Unknown]
  - Vomiting [Unknown]
  - Sleep apnoea syndrome [Unknown]
  - Pneumonia [Unknown]
  - Nausea [Unknown]
  - Diarrhoea [Unknown]
  - Sneezing [Unknown]
